FAERS Safety Report 8625444-3 (Version None)
Quarter: 2012Q3

REPORT INFORMATION
  Report Type: 
  Country: None (occurrence: None)
  Receive Date: 20120827
  Receipt Date: 20120820
  Transmission Date: 20120928
  Serious: Yes (Other)
  Sender: FDA-Public Use
  Company Number: CHPA2012US018455

PATIENT
  Sex: Female

DRUGS (1)
  1. BENEFIBER W/ WHEAT DEXTRIN [Suspect]
     Indication: MULTIPLE SCLEROSIS
     Dosage: 3 TSP, QD (OFF AND ON X 2 YEARS)
     Route: 048
     Dates: start: 20100101

REACTIONS (3)
  - OFF LABEL USE [None]
  - FAECAL INCONTINENCE [None]
  - EXPIRED DRUG ADMINISTERED [None]
